FAERS Safety Report 5841711-0 (Version None)
Quarter: 2008Q3

REPORT INFORMATION
  Report Type: 
  Country: None (occurrence: None)
  Receive Date: 20080731
  Receipt Date: 20080520
  Transmission Date: 20090109
  Serious: No
  Sender: FDA-Public Use
  Company Number: US200805004300

PATIENT
  Sex: Female

DRUGS (6)
  1. BYETTA [Suspect]
     Indication: TYPE 2 DIABETES MELLITUS
     Dosage: 5 UG, 2/D, SUBCUTANEOUS; 5 UG, EACH MORNING, SUBCUTANEOUS; 10 UG, EACH EVENING, SUBCUTANEOUS
     Route: 058
     Dates: start: 20080401, end: 20080515
  2. BYETTA [Suspect]
     Indication: TYPE 2 DIABETES MELLITUS
     Dosage: 5 UG, 2/D, SUBCUTANEOUS; 5 UG, EACH MORNING, SUBCUTANEOUS; 10 UG, EACH EVENING, SUBCUTANEOUS
     Route: 058
     Dates: start: 20080516
  3. BYETTA [Suspect]
     Indication: TYPE 2 DIABETES MELLITUS
     Dosage: 5 UG, 2/D, SUBCUTANEOUS; 5 UG, EACH MORNING, SUBCUTANEOUS; 10 UG, EACH EVENING, SUBCUTANEOUS
     Route: 058
     Dates: start: 20080516
  4. METFORMIN HCL [Concomitant]
  5. DRUG USED IN DIABETES [Concomitant]
  6. ACTOS [Concomitant]

REACTIONS (1)
  - BLOOD GLUCOSE INCREASED [None]
